FAERS Safety Report 9324273 (Version 1)
Quarter: 2013Q2

REPORT INFORMATION
  Report Type: Spontaneous
  Country: JP (occurrence: JP)
  Receive Date: 20130603
  Receipt Date: 20130603
  Transmission Date: 20140414
  Serious: Yes (Hospitalization)
  Sender: FDA-Public Use
  Company Number: JP-ASTRAZENECA-2013SE37871

PATIENT
  Sex: 0

DRUGS (5)
  1. MEROPEN [Suspect]
     Route: 042
  2. VANCOMYCIN HYDROCHLORIDE [Concomitant]
  3. ONCOVIN [Concomitant]
  4. FUNGUARD [Concomitant]
  5. GLOBULIN [Concomitant]

REACTIONS (1)
  - Premature baby [Unknown]
